FAERS Safety Report 5840053-7 (Version None)
Quarter: 2008Q3

REPORT INFORMATION
  Report Type: 
  Country: None (occurrence: None)
  Receive Date: 20080807
  Receipt Date: 20080807
  Transmission Date: 20090109
  Serious: Yes (Other)
  Sender: FDA-Public Use
  Company Number: None

PATIENT
  Sex: Female
  Weight: 47.1741 kg

DRUGS (7)
  1. RECLAST [Suspect]
     Indication: OSTEOPOROSIS
     Dosage: 5MG/100ML IV ONCE 6/2/08 IV
     Route: 042
     Dates: start: 20080602
  2. HORMONE REPLACEMENT THERAPY (PREMARIN) [Concomitant]
  3. NEXIUM [Concomitant]
  4. GABEPENTIN [Concomitant]
  5. CLONAZEPAM [Concomitant]
  6. LORAZEPAM [Concomitant]
  7. CALCIUM AND MULTIVITAMIN SUPPLEMENTS [Concomitant]

REACTIONS (11)
  - ACTIVITIES OF DAILY LIVING IMPAIRED [None]
  - BONE PAIN [None]
  - CHILLS [None]
  - DECREASED APPETITE [None]
  - FACIAL PAIN [None]
  - HEADACHE [None]
  - INFUSION RELATED REACTION [None]
  - LETHARGY [None]
  - MYOFASCIAL PAIN SYNDROME [None]
  - NECK PAIN [None]
  - PAIN [None]
